FAERS Safety Report 5122888-1 (Version None)
Quarter: 2006Q4

REPORT INFORMATION
  Report Type: 
  Country: None (occurrence: None)
  Receive Date: 20061005
  Receipt Date: 20060925
  Transmission Date: 20070319
  Serious: Yes (Other)
  Sender: FDA-Public Use
  Company Number: HQWYE156126SEP06

PATIENT
  Age: 30 Year
  Sex: Female
  Weight: 63.65 kg

DRUGS (9)
  1. PREMARIN [Suspect]
     Indication: OESTROGEN REPLACEMENT THERAPY
     Dosage: 0.625 MG ORAL
     Route: 048
     Dates: start: 20010101
  2. PREDNISONE TAB [Concomitant]
  3. ZOFRAN [Concomitant]
  4. ATIVAN [Concomitant]
  5. PHENERGAN (PROMETHAZINE HYDROCHLORIDE) [Concomitant]
  6. NASAL PREPARATIONS          (NASAL PREPARATIONS) [Concomitant]
  7. ZANTAC [Concomitant]
  8. DEMEROL [Concomitant]
  9. DILAUDID [Concomitant]

REACTIONS (4)
  - CEREBROVASCULAR ACCIDENT [None]
  - HAEMATOMA [None]
  - HYPERTENSION [None]
  - THROMBOSIS [None]
